FAERS Safety Report 6589531-6 (Version None)
Quarter: 2010Q1

REPORT INFORMATION
  Report Type: 
  Country: None (occurrence: None)
  Receive Date: 20100212
  Receipt Date: 20100204
  Transmission Date: 20100710
  Serious: Yes (Hospitalization, Other)
  Sender: FDA-Public Use
  Company Number: VISP-NO-1002S-0058

PATIENT
  Age: 75 Year
  Sex: Male

DRUGS (2)
  1. VISIPAQUE [Suspect]
     Indication: COLON CANCER
     Dosage: 100 ML, SINGLE DOSE, I.V.
     Route: 042
     Dates: start: 20100126, end: 20100126
  2. VISIPAQUE [Suspect]
     Indication: FLATULENCE
     Dosage: 100 ML, SINGLE DOSE, I.V.
     Route: 042
     Dates: start: 20100126, end: 20100126

REACTIONS (5)
  - ANURIA [None]
  - DIALYSIS [None]
  - HEPATITIS [None]
  - PANCYTOPENIA [None]
  - PARAPLEGIA [None]
